FAERS Safety Report 9079573 (Version 1)
Quarter: 2013Q1

REPORT INFORMATION
  Report Type: Spontaneous
  Country: JP (occurrence: JP)
  Receive Date: 20130130
  Receipt Date: 20130130
  Transmission Date: 20140127
  Serious: Yes (Other)
  Sender: FDA-Public Use
  Company Number: JP-TEVA-382433ISR

PATIENT
  Age: 8 Decade
  Sex: Male
  Weight: 59 kg

DRUGS (15)
  1. CEFTRIAXONE [Suspect]
     Indication: INFECTION
     Dosage: 1 GRAM DAILY;
     Route: 042
  2. CEFTRIAXONE [Suspect]
     Indication: INFECTION
     Dosage: 2 GRAM DAILY;
     Route: 042
  3. CEFTRIAXONE [Suspect]
     Indication: INFECTION
     Dosage: 4 GRAM DAILY;
     Route: 042
  4. OMEPRAZOLE [Concomitant]
     Route: 065
  5. ALFACALCIDOL [Concomitant]
     Route: 065
  6. ASPIRIN [Concomitant]
     Route: 065
  7. NIFEDIPINE [Concomitant]
     Route: 065
  8. CALCIUM CARBONATE [Concomitant]
     Route: 065
  9. LOSARTAN [Concomitant]
     Route: 065
  10. DOXAZOSIN [Concomitant]
     Route: 065
  11. EPINASTINE [Concomitant]
     Route: 065
  12. GLUCOSE [Concomitant]
     Route: 065
  13. URSODEOXYCHOLIC ACID [Concomitant]
     Route: 065
  14. THIAMINE, ASCORBIC ACID [Concomitant]
     Route: 065
  15. AMIKACIN [Concomitant]
     Route: 065

REACTIONS (1)
  - Altered state of consciousness [Recovered/Resolved]
